FAERS Safety Report 6568728-5 (Version None)
Quarter: 2010Q1

REPORT INFORMATION
  Report Type: 
  Country: None (occurrence: None)
  Receive Date: 20100203
  Receipt Date: 20100129
  Transmission Date: 20100710
  Serious: Yes (Death, Life-Threatening, Hospitalization)
  Sender: FDA-Public Use
  Company Number: PHHO2009JP14739

PATIENT
  Sex: Female
  Weight: 37 kg

DRUGS (10)
  1. BLINDED ALISKIREN ALI+TAB+CF [Suspect]
     Dosage: NO TREATMENT
     Dates: end: 20091123
  2. BLINDED ENALAPRIL COMP-ENA+ [Suspect]
     Dosage: NO TREATMENT
     Dates: end: 20091123
  3. BLINDED NO TREATMENT RECEIVED NOMED [Suspect]
     Dosage: NO TREATMENT
     Dates: end: 20091123
  4. COMPARATOR ENALAPRIL [Suspect]
     Indication: CARDIAC FAILURE
     Dosage: 20 MG, QD
     Route: 048
     Dates: start: 20091120, end: 20091123
  5. LASIX [Concomitant]
     Indication: CARDIAC FAILURE
  6. FUROSEMIDE [Concomitant]
     Indication: CARDIAC FAILURE
  7. WARFARIN [Concomitant]
  8. PARIET [Concomitant]
     Indication: GASTRITIS
  9. MIYA-BM [Concomitant]
     Indication: CONSTIPATION
  10. SODIUM PICOSULFATE [Concomitant]
     Indication: CONSTIPATION

REACTIONS (25)
  - ABDOMINAL PAIN UPPER [None]
  - ASCITES [None]
  - BACK PAIN [None]
  - BLOOD PRESSURE DECREASED [None]
  - CARDIAC FAILURE CHRONIC [None]
  - CARDIAC HYPERTROPHY [None]
  - CONCOMITANT DISEASE PROGRESSION [None]
  - CYANOSIS [None]
  - DECREASED APPETITE [None]
  - DEHYDRATION [None]
  - DEPRESSED LEVEL OF CONSCIOUSNESS [None]
  - DIARRHOEA [None]
  - DYSPNOEA [None]
  - FATIGUE [None]
  - GASTROENTERITIS [None]
  - HEART RATE DECREASED [None]
  - HEPATIC FUNCTION ABNORMAL [None]
  - MOUTH BREATHING [None]
  - NAUSEA [None]
  - OEDEMA [None]
  - PERICARDIAL EFFUSION [None]
  - PLEURAL EFFUSION [None]
  - VOMITING [None]
  - WEIGHT INCREASED [None]
  - WHITE BLOOD CELL COUNT INCREASED [None]
